FAERS Safety Report 7452302-2 (Version None)
Quarter: 2011Q2

REPORT INFORMATION
  Report Type: 
  Country: None (occurrence: None)
  Receive Date: 20110502
  Receipt Date: 20100910
  Transmission Date: 20111010
  Serious: No
  Sender: FDA-Public Use
  Company Number: US-ASTRAZENECA-2010SE39307

PATIENT
  Sex: Female
  Weight: 85.7 kg

DRUGS (16)
  1. DICYCLOMINE [Concomitant]
  2. PLAQUENIL [Concomitant]
  3. CALCITRIOL [Concomitant]
  4. TRICOR [Concomitant]
  5. NEURONTIN [Concomitant]
  6. FOLIC ACID [Concomitant]
  7. NEXIUM [Suspect]
     Indication: DYSPEPSIA
     Route: 048
     Dates: start: 20010101
  8. COUMADIN [Concomitant]
  9. VITAMIN D [Concomitant]
  10. PROCRIT [Concomitant]
  11. ATENOLOL [Concomitant]
  12. ALLOPURINOL [Concomitant]
  13. COZAAR [Concomitant]
  14. TOPAMAX [Concomitant]
  15. SYNTHROID [Concomitant]
  16. LASIX [Concomitant]

REACTIONS (2)
  - DYSPHONIA [None]
  - DYSGEUSIA [None]
